FAERS Safety Report 6683431-9 (Version None)
Quarter: 2010Q2

REPORT INFORMATION
  Report Type: 
  Country: None (occurrence: None)
  Receive Date: 20100415
  Receipt Date: 20100407
  Transmission Date: 20101027
  Serious: Yes (Other)
  Sender: FDA-Public Use
  Company Number: GB-GILEAD-2010-0027265

PATIENT
  Age: 49 Year
  Sex: Female

DRUGS (5)
  1. TRUVADA [Suspect]
     Indication: HIV INFECTION
  2. DARUNAVIR ETHANOLATE [Suspect]
     Indication: HIV INFECTION
  3. ETRAVIRINE [Suspect]
     Indication: HIV INFECTION
  4. MARAVIROC [Suspect]
     Indication: HIV INFECTION
  5. RALTEGRAVIR POTASSIUM [Suspect]
     Indication: HIV INFECTION

REACTIONS (3)
  - HYPERGLYCAEMIA [None]
  - HYPERLIPIDAEMIA [None]
  - PROTEINURIA [None]
